FAERS Safety Report 5744625-X (Version None)
Quarter: 2008Q2

REPORT INFORMATION
  Report Type: 
  Country: None (occurrence: None)
  Receive Date: 20080520
  Receipt Date: 20080410
  Transmission Date: 20081010
  Serious: No
  Sender: FDA-Public Use
  Company Number: US-ABBOTT-08P-163-0446544-00

PATIENT
  Sex: Male

DRUGS (2)
  1. AZMACORT [Suspect]
     Indication: UPPER RESPIRATORY TRACT INFECTION
     Route: 055
  2. ROBITUSSIN WITH CODEINE [Concomitant]
     Indication: UPPER RESPIRATORY TRACT INFECTION

REACTIONS (1)
  - UNDERDOSE [None]
